FAERS Safety Report 16926891 (Version 2)
Quarter: 2019Q4

REPORT INFORMATION
  Report Type: Report from Study
  Country: US (occurrence: US)
  Receive Date: 20191016
  Receipt Date: 20191111
  Transmission Date: 20200122
  Serious: Yes (Hospitalization, Other)
  Sender: FDA-Public Use
  Company Number: US-GILEAD-2019-0433323

PATIENT
  Age: 31 Year
  Sex: Male

DRUGS (7)
  1. PULMOZYME [Concomitant]
     Active Substance: DORNASE ALFA
     Dosage: UNKNOWN
  2. SILDENAFIL. [Concomitant]
     Active Substance: SILDENAFIL
     Dosage: UNKNOWN
  3. SYMDEKO [Concomitant]
     Active Substance: IVACAFTOR\TEZACAFTOR
  4. BETHKIS [Concomitant]
     Active Substance: TOBRAMYCIN
     Dosage: UNKNOWN
  5. AZTREONAM LYSINE [Suspect]
     Active Substance: AZTREONAM LYSINE
     Indication: CYSTIC FIBROSIS
     Dosage: 75 MG, TID, QOM
     Route: 055
  6. AZTREONAM LYSINE [Suspect]
     Active Substance: AZTREONAM LYSINE
     Indication: PSEUDOMONAS INFECTION
  7. ALBUTEROL SULFATE. [Concomitant]
     Active Substance: ALBUTEROL SULFATE
     Dosage: UNKNOWN

REACTIONS (1)
  - Cystic fibrosis [Not Recovered/Not Resolved]
